FAERS Safety Report 9014384 (Version 8)
Quarter: 2013Q3

REPORT INFORMATION
  Report Type: Spontaneous
  Country: US (occurrence: US)
  Receive Date: 20130115
  Receipt Date: 20130813
  Transmission Date: 20140515
  Serious: Yes (Other)
  Sender: FDA-Public Use
  Company Number: US-PFIZER INC-2013016744

PATIENT
  Age: 58 Year
  Sex: Female
  Weight: 68.03 kg

DRUGS (10)
  1. LYRICA [Suspect]
     Indication: FIBROMYALGIA
     Dosage: 225 MG, 2X/DAY
     Route: 048
     Dates: start: 2012
  2. LYRICA [Suspect]
     Indication: DIABETIC NEUROPATHY
     Dosage: 150 MG, 2X/DAY
     Route: 048
  3. LYRICA [Suspect]
     Indication: NEUROPATHY PERIPHERAL
     Dosage: 75 MG, UNK
     Route: 048
     Dates: start: 20120112, end: 20130729
  4. ORPHENADRINE [Concomitant]
     Dosage: 100 MG, 2X/DAY, EVERY 12 HRS
  5. LORTAB [Concomitant]
     Indication: PAIN
     Dosage: 1 DF, 3X/DAY (AS NEEDED)
  6. CLINORIL [Concomitant]
     Dosage: 200 MG, 2X/DAY
  7. ASPIRIN [Concomitant]
     Dosage: UNK
  8. METFORMIN [Concomitant]
     Dosage: UNK
  9. CELEXA [Concomitant]
     Dosage: UNK
  10. LASIX [Concomitant]
     Dosage: UNK

REACTIONS (10)
  - Withdrawal syndrome [Not Recovered/Not Resolved]
  - Aphagia [Not Recovered/Not Resolved]
  - Weight decreased [Not Recovered/Not Resolved]
  - Bedridden [Not Recovered/Not Resolved]
  - Malaise [Not Recovered/Not Resolved]
  - Vomiting [Not Recovered/Not Resolved]
  - Diarrhoea [Not Recovered/Not Resolved]
  - Insomnia [Not Recovered/Not Resolved]
  - Nausea [Not Recovered/Not Resolved]
  - Pain in extremity [Not Recovered/Not Resolved]
